FAERS Safety Report 12530794 (Version 14)
Quarter: 2016Q4

REPORT INFORMATION
  Report Type: Report from Study
  Country: US (occurrence: US)
  Receive Date: 20160706
  Receipt Date: 20161206
  Transmission Date: 20170207
  Serious: Yes (Other)
  Sender: FDA-Public Use
  Company Number: US-BAYER-2016-074925

PATIENT
  Age: 69 Year
  Sex: Female
  Weight: 76 kg

DRUGS (11)
  1. ADEMPAS [Suspect]
     Active Substance: RIOCIGUAT
     Indication: PULMONARY ARTERIAL HYPERTENSION
     Dosage: 0.5 MG, TID (LAST SHIP DATE: 15-APR-2016)
     Route: 048
     Dates: start: 20160613
  2. ADEMPAS [Suspect]
     Active Substance: RIOCIGUAT
     Indication: PULMONARY ARTERIAL HYPERTENSION
     Dosage: 2.5 MG, TID(LAST SHIPPED 11-JAN-2016)
  3. AMLODIPINE [Suspect]
     Active Substance: AMLODIPINE BESYLATE
     Indication: PRODUCT USED FOR UNKNOWN INDICATION
     Dosage: UNK
     Route: 065
  4. ADEMPAS [Suspect]
     Active Substance: RIOCIGUAT
     Indication: PULMONARY ARTERIAL HYPERTENSION
     Dosage: 2.5 MG, TID (LAST SHIPPED: 01-AUG-2016)
  5. ADEMPAS [Suspect]
     Active Substance: RIOCIGUAT
     Indication: PULMONARY ARTERIAL HYPERTENSION
     Dosage: UNK
     Dates: start: 20160405
  6. ADEMPAS [Suspect]
     Active Substance: RIOCIGUAT
     Indication: PULMONARY ARTERIAL HYPERTENSION
     Dosage: 2.5 MG, UNK
     Route: 065
     Dates: start: 20160811
  7. AMBRISENTAN [Suspect]
     Active Substance: AMBRISENTAN
     Dosage: UNK
     Route: 065
     Dates: start: 20160330
  8. LETAIRIS [Suspect]
     Active Substance: AMBRISENTAN
     Indication: PRODUCT USED FOR UNKNOWN INDICATION
     Dosage: 5 MG, QD
     Route: 065
  9. UPTRAVI [Concomitant]
     Active Substance: SELEXIPAG
     Dosage: UNK
  10. ADEMPAS [Suspect]
     Active Substance: RIOCIGUAT
     Indication: PULMONARY ARTERIAL HYPERTENSION
     Dosage: 0.5 MG, TID (LAST SHIP DATE: 15-APR-2016)
     Route: 048
     Dates: start: 20160405
  11. LETAIRIS [Suspect]
     Active Substance: AMBRISENTAN
     Indication: PRODUCT USED FOR UNKNOWN INDICATION
     Dosage: DAILY DOSE 5 MG

REACTIONS (29)
  - Productive cough [Unknown]
  - Diastolic hypotension [None]
  - Gastric disorder [Unknown]
  - Gastrooesophageal reflux disease [None]
  - Diarrhoea [Unknown]
  - Vomiting [Not Recovered/Not Resolved]
  - Wheezing [None]
  - Vomiting [None]
  - Vomiting [None]
  - Fatigue [None]
  - Abdominal distension [None]
  - Ankle fracture [Unknown]
  - Dyspnoea [None]
  - Headache [None]
  - Exercise tolerance decreased [None]
  - Lip injury [None]
  - Sluggishness [None]
  - Joint stiffness [None]
  - Gait disturbance [None]
  - Syncope [None]
  - Diastolic hypotension [None]
  - Palpitations [None]
  - Epigastric discomfort [None]
  - Abdominal pain upper [Unknown]
  - Nausea [Unknown]
  - Foot fracture [Unknown]
  - Dyspnoea [None]
  - Vomiting [None]
  - Headache [Unknown]

NARRATIVE: CASE EVENT DATE: 20160627
